FAERS Safety Report 10994978 (Version 1)
Quarter: 2015Q2

REPORT INFORMATION
  Report Type: Spontaneous
  Country: JP (occurrence: JP)
  Receive Date: 20150407
  Receipt Date: 20150407
  Transmission Date: 20150821
  Serious: Yes (Hospitalization, Other)
  Sender: FDA-Public Use
  Company Number: JP-GLAXOSMITHKLINE-B0992055A

PATIENT
  Age: 13 Year
  Sex: Female

DRUGS (4)
  1. LAMOTRIGINE. [Suspect]
     Active Substance: LAMOTRIGINE
     Indication: BIPOLAR DISORDER
     Dosage: 25 MG, BID
     Route: 048
     Dates: start: 20140305, end: 20140319
  2. LAMOTRIGINE. [Suspect]
     Active Substance: LAMOTRIGINE
     Dosage: 50 MG, BID
     Route: 048
     Dates: start: 20140320, end: 20140407
  3. NEULEPTIL [Suspect]
     Active Substance: PERICIAZINE
     Dosage: UNK
     Route: 048
     Dates: end: 20140415
  4. RISPERDAL [Suspect]
     Active Substance: RISPERIDONE
     Dosage: UNK
     Route: 048
     Dates: end: 20140415

REACTIONS (11)
  - Erythema [Recovering/Resolving]
  - Swelling face [Recovering/Resolving]
  - Drug reaction with eosinophilia and systemic symptoms [Recovering/Resolving]
  - Pyrexia [Recovering/Resolving]
  - Rash papular [Recovering/Resolving]
  - Rash [Recovering/Resolving]
  - Eosinophil count increased [Recovering/Resolving]
  - Lymphadenopathy [Recovering/Resolving]
  - Hepatic function abnormal [Unknown]
  - White blood cell count increased [Recovering/Resolving]
  - Rash erythematous [Unknown]

NARRATIVE: CASE EVENT DATE: 20140405
